FAERS Safety Report 6512400-4 (Version None)
Quarter: 2009Q4

REPORT INFORMATION
  Report Type: 
  Country: None (occurrence: None)
  Receive Date: 20091217
  Receipt Date: 20091202
  Transmission Date: 20100525
  Serious: Yes (Other)
  Sender: FDA-Public Use
  Company Number: MC200900424

PATIENT
  Age: 70 Year
  Sex: Male

DRUGS (3)
  1. ANGIOMAX [Suspect]
     Indication: PERCUTANEOUS CORONARY INTERVENTION
     Dosage: 0.75 MG/KG, BOLUS, INTRAVENOUS; 1.75 MG/KG, HR, INTRAVENOUS
     Route: 040
     Dates: start: 20091202, end: 20091202
  2. ASPIRIN [Concomitant]
  3. FUROSEMIDE (FUROSEMIDE SODIUM) [Concomitant]

REACTIONS (4)
  - BLOOD PRESSURE SYSTOLIC INCREASED [None]
  - EMBOLIC STROKE [None]
  - NEUROLOGICAL SYMPTOM [None]
  - UNRESPONSIVE TO STIMULI [None]
